FAERS Safety Report 6823821-4 (Version None)
Quarter: 2010Q3

REPORT INFORMATION
  Report Type: 
  Country: None (occurrence: None)
  Receive Date: 20100708
  Receipt Date: 20070918
  Transmission Date: 20110219
  Serious: No
  Sender: FDA-Public Use
  Company Number: US-PFIZER INC-2006113504

PATIENT
  Sex: Male
  Weight: 127.01 kg

DRUGS (4)
  1. CHANTIX [Suspect]
     Indication: SMOKING CESSATION THERAPY
     Route: 048
     Dates: start: 20060909
  2. NEXIUM [Concomitant]
  3. KLONOPIN [Concomitant]
  4. BENICAR HCT [Concomitant]

REACTIONS (2)
  - NAUSEA [None]
  - TOBACCO USER [None]
